FAERS Safety Report 10164506 (Version 2)
Quarter: 2014Q2

REPORT INFORMATION
  Report Type: Spontaneous
  Country: US (occurrence: US)
  Receive Date: 20140510
  Receipt Date: 20140510
  Transmission Date: 20141212
  Serious: No
  Sender: FDA-Public Use
  Company Number: US-BRISTOL-MYERS SQUIBB COMPANY-20079794

PATIENT
  Age: 49 Year
  Sex: Female

DRUGS (6)
  1. BYDUREON [Suspect]
     Indication: TYPE 2 DIABETES MELLITUS
     Route: 058
     Dates: start: 20140121
  2. GLYBURIDE [Concomitant]
     Route: 048
  3. LISINOPRIL [Concomitant]
     Route: 048
  4. ONGLYZA TABS 2.5 MG [Concomitant]
     Route: 048
  5. NOVOLOG [Concomitant]
     Dosage: 22 UNITS NOS INMRNG?13 UNITS NOS IN EVE
  6. METFORMIN [Concomitant]
     Route: 048

REACTIONS (1)
  - Drug prescribing error [Unknown]
